FAERS Safety Report 9892848 (Version 1)
Quarter: 2014Q1

REPORT INFORMATION
  Report Type: Spontaneous
  Country: AT (occurrence: AT)
  Receive Date: 20140213
  Receipt Date: 20140213
  Transmission Date: 20141002
  Serious: Yes (Hospitalization, Other)
  Sender: FDA-Public Use
  Company Number: AT-PAR PHARMACEUTICAL, INC-2014SCPR008913

PATIENT
  Sex: 0

DRUGS (6)
  1. CIPROFLOXACIN ER [Suspect]
     Indication: LUNG INFILTRATION
     Dosage: 400 MG, EVERY 12 HOURS
     Route: 065
  2. CIPROFLOXACIN ER [Suspect]
     Indication: ESCHERICHIA BACTERAEMIA
     Dosage: 400 MG, TID
     Route: 065
  3. TIGECYCLINE [Concomitant]
     Indication: ANTI-INFECTIVE THERAPY
     Dosage: 100 MG, EVERY 12 HOURS
     Route: 065
  4. FOSFOMYCIN [Concomitant]
     Indication: LUNG INFILTRATION
     Dosage: 4 G, TID
     Route: 065
  5. FOSFOMYCIN [Concomitant]
     Indication: ESCHERICHIA BACTERAEMIA
     Dosage: 8 G, EVERY 12 HOURS
     Route: 065
  6. ATORVASTATIN [Concomitant]
     Indication: PRODUCT USED FOR UNKNOWN INDICATION
     Dosage: 80 MG, UNKNOWN
     Route: 065

REACTIONS (2)
  - Rhabdomyolysis [Recovered/Resolved]
  - Renal impairment [Recovered/Resolved]
